FAERS Safety Report 6263836-0 (Version None)
Quarter: 2009Q3

REPORT INFORMATION
  Report Type: 
  Country: None (occurrence: None)
  Receive Date: 20090710
  Receipt Date: 20090702
  Transmission Date: 20100115
  Serious: Yes (Hospitalization)
  Sender: FDA-Public Use
  Company Number: US-KINGPHARMUSA00001-K200900789

PATIENT
  Age: 59 Year
  Sex: Male

DRUGS (11)
  1. ALTACE [Suspect]
     Route: 048
  2. METFORMIN HCL [Suspect]
     Dosage: 2250 MG, QD
     Route: 048
     Dates: start: 19990101, end: 20090227
  3. ALDACTONE [Suspect]
     Route: 048
  4. LASIX [Concomitant]
  5. TAHOR [Concomitant]
     Route: 048
  6. BISOPROLOL FUMARATE [Concomitant]
     Route: 048
  7. AMLOR [Concomitant]
     Route: 048
  8. ASPEGIC 1000 [Concomitant]
  9. IKOREL [Concomitant]
     Route: 048
  10. PREVISCAN [Concomitant]
     Route: 048
  11. CORDARONE [Concomitant]

REACTIONS (9)
  - ANURIA [None]
  - BRONCHITIS [None]
  - CARDIAC FAILURE [None]
  - CYANOSIS [None]
  - GENERALISED OEDEMA [None]
  - HYPERKALAEMIA [None]
  - LACTIC ACIDOSIS [None]
  - RENAL FAILURE ACUTE [None]
  - TACHYPNOEA [None]
